FAERS Safety Report 17164775 (Version 4)
Quarter: 2020Q1

REPORT INFORMATION
  Report Type: Report from Study
  Country: None (occurrence: CA)
  Receive Date: 20191217
  Receipt Date: 20200217
  Transmission Date: 20200409
  Serious: Yes (Death, Other)
  Sender: FDA-Public Use
  Company Number: CA-ABBVIE-19K-028-3198794-00

PATIENT
  Age: 78 Year
  Sex: Male

DRUGS (1)
  1. DUODOPA [Suspect]
     Active Substance: CARBIDOPA\LEVODOPA
     Indication: PARKINSON^S DISEASE
     Dosage: DUODOPA-LEVODOPA20MG/ML, CARBIDOPAMONOHYDRATE5MG/ML?20 MG/ML 5 MG/ML
     Route: 050
     Dates: start: 20170206

REACTIONS (10)
  - Agitation [Unknown]
  - Secretion discharge [Unknown]
  - Death [Fatal]
  - Respiratory arrest [Unknown]
  - Intentional device misuse [Recovered/Resolved]
  - Productive cough [Unknown]
  - Confusional state [Unknown]
  - Unresponsive to stimuli [Unknown]
  - Intentional device misuse [Unknown]
  - Dementia [Unknown]

NARRATIVE: CASE EVENT DATE: 2019
